FAERS Safety Report 8552022-7 (Version None)
Quarter: 2012Q3

REPORT INFORMATION
  Report Type: 
  Country: None (occurrence: None)
  Receive Date: 20120730
  Receipt Date: 20120716
  Transmission Date: 20120928
  Serious: Yes (Other)
  Sender: FDA-Public Use
  Company Number: CHPA2012US015675

PATIENT
  Age: 48 Year
  Sex: Female

DRUGS (1)
  1. TRANSDERM SCOP [Suspect]
     Indication: NAUSEA
     Dosage: 1 DF, Q72H
     Route: 062
     Dates: start: 20120501, end: 20120715

REACTIONS (6)
  - APPLICATION SITE PAPULES [None]
  - APPLICATION SITE INFLAMMATION [None]
  - OFF LABEL USE [None]
  - NEUROPATHY PERIPHERAL [None]
  - CONCOMITANT DISEASE AGGRAVATED [None]
  - APPLICATION SITE ERYTHEMA [None]
